FAERS Safety Report 8436328-8 (Version None)
Quarter: 2012Q2

REPORT INFORMATION
  Report Type: 
  Country: None (occurrence: None)
  Receive Date: 20120607
  Receipt Date: 20120607
  Transmission Date: 20120825
  Serious: Yes (Hospitalization)
  Sender: FDA-Public Use
  Company Number: None

PATIENT
  Sex: Male
  Weight: 54.4316 kg

DRUGS (2)
  1. PRADAXA [Suspect]
     Indication: INTERNATIONAL NORMALISED RATIO
     Dosage: PRADAXA 75 MG BID PO
     Route: 048
     Dates: start: 20120413, end: 20120506
  2. PRADAXA [Suspect]
     Indication: ATRIAL FIBRILLATION
     Dosage: PRADAXA 75 MG BID PO
     Route: 048
     Dates: start: 20120413, end: 20120506

REACTIONS (2)
  - GASTROINTESTINAL HAEMORRHAGE [None]
  - HAEMATOCHEZIA [None]
